FAERS Safety Report 4991408-4 (Version None)
Quarter: 2006Q2

REPORT INFORMATION
  Report Type: 
  Country: None (occurrence: None)
  Receive Date: 20060502
  Receipt Date: 20060425
  Transmission Date: 20061013
  Serious: Yes (Hospitalization)
  Sender: FDA-Public Use
  Company Number: 2006-137731-NL

PATIENT
  Age: 44 Year
  Sex: Male

DRUGS (3)
  1. MIRTAZAPINE [Suspect]
     Dosage: 45 MG ORAL
     Route: 048
     Dates: start: 20000101, end: 20050101
  2. AMISULPRIDE [Concomitant]
  3. SIMVASTATIN [Concomitant]

REACTIONS (2)
  - OSTEOPOROTIC FRACTURE [None]
  - THORACIC VERTEBRAL FRACTURE [None]
